FAERS Safety Report 15221369 (Version 1)
Quarter: 2018Q3

REPORT INFORMATION
  Report Type: Spontaneous
  Country: US (occurrence: US)
  Receive Date: 20180731
  Receipt Date: 20180731
  Transmission Date: 20181010
  Serious: No
  Sender: FDA-Public Use
  Company Number: US-009507513-1307USA010477

PATIENT
  Age: 18 Year
  Sex: Female

DRUGS (6)
  1. LAMIVUDINE AND ZIDOVUDINE [Suspect]
     Active Substance: LAMIVUDINE\ZIDOVUDINE
     Dosage: TOTAL DAILY DOSE: 2
     Route: 048
  2. RITONAVIR. [Suspect]
     Active Substance: RITONAVIR
     Dosage: TOTAL DAILY DOSE: 200
     Route: 048
  3. LOPINAVIR (+) RITONAVIR [Suspect]
     Active Substance: LOPINAVIR\RITONAVIR
     Dosage: TOTAL DAILY DOSE: 4
     Route: 048
  4. ISENTRESS [Suspect]
     Active Substance: RALTEGRAVIR POTASSIUM
     Dosage: TOTAL DAILY DOSE: 800
     Route: 048
  5. DARUNAVIR [Suspect]
     Active Substance: DARUNAVIR
     Dosage: DAILY DOSE 1200
     Route: 048
  6. TENOFOVIR DISOPROXIL FUMARATE. [Suspect]
     Active Substance: TENOFOVIR DISOPROXIL FUMARATE
     Dosage: TOTAL DAILY DOSE: 300
     Route: 048

REACTIONS (2)
  - Maternal exposure during pregnancy [Recovered/Resolved]
  - No adverse event [Unknown]
